FAERS Safety Report 25668115 (Version 3)
Quarter: 2025Q4

REPORT INFORMATION
  Report Type: Report from Study
  Country: US (occurrence: US)
  Receive Date: 20250812
  Receipt Date: 20251222
  Transmission Date: 20260117
  Serious: No
  Sender: AVERITAS
  Company Number: US-GRUNENTHAL-2025-112287

PATIENT
  Age: 53 Year
  Sex: Male

DRUGS (1)
  1. QUTENZA [Suspect]
     Active Substance: CAPSAICIN
     Indication: Diabetic neuropathy
     Dosage: UNK, ONCE
     Route: 061
     Dates: start: 20250731, end: 20250731

REACTIONS (7)
  - Feeling hot [Recovered/Resolved]
  - Accidental exposure to product [Unknown]
  - Skin burning sensation [Unknown]
  - Eye irritation [Unknown]
  - Nasal discomfort [Unknown]
  - Pain [Unknown]
  - Pain in extremity [Unknown]

NARRATIVE: CASE EVENT DATE: 20250731
